FAERS Safety Report 7482941-4 (Version None)
Quarter: 2011Q2

REPORT INFORMATION
  Report Type: 
  Country: None (occurrence: None)
  Receive Date: 20110516
  Receipt Date: 20110512
  Transmission Date: 20111010
  Serious: Yes (Hospitalization, Other)
  Sender: FDA-Public Use
  Company Number: ES-PFIZER INC-2011055121

PATIENT
  Age: 88 Year
  Sex: Female

DRUGS (6)
  1. CITALOPRAM HYDROBROMIDE [Interacting]
     Indication: DEPRESSION
     Dosage: 10 MG, 1X/DAY
     Route: 048
     Dates: start: 20091230
  2. TRAMADOL HCL [Interacting]
     Indication: BACK PAIN
     Dosage: 20 GTT, 1X/DAY
     Route: 048
     Dates: start: 20100105, end: 20100111
  3. DIAZEPAM [Interacting]
     Dosage: 5 MG, 1X/DAY
     Route: 048
     Dates: start: 20100105, end: 20100123
  4. BUPRENORPHINE [Interacting]
     Indication: BACK PAIN
     Dosage: 11.6 UG, 1X/DAY
     Route: 062
     Dates: start: 20100112, end: 20100117
  5. ALPRAZOLAM [Suspect]
     Indication: DEPRESSION
     Dosage: 0.75 MG, 1X/DAY
     Route: 048
     Dates: start: 20091230
  6. TRAMADOL HCL [Interacting]
     Indication: BACK PAIN
     Dosage: 50 MG, 1X/DAY
     Route: 048
     Dates: start: 20100118, end: 20100123

REACTIONS (4)
  - HYPOREFLEXIA [None]
  - DRUG INTERACTION [None]
  - DISORIENTATION [None]
  - CONFUSIONAL STATE [None]
